FAERS Safety Report 7197409-2 (Version None)
Quarter: 2010Q4

REPORT INFORMATION
  Report Type: 
  Country: None (occurrence: None)
  Receive Date: 20101206
  Receipt Date: 20101201
  Transmission Date: 20110411
  Serious: Yes (Other)
  Sender: FDA-Public Use
  Company Number: A0897256A

PATIENT
  Age: 24 Month
  Sex: Male

DRUGS (1)
  1. UREA PEROXIDE [Suspect]
     Indication: PRODUCT USED FOR UNKNOWN INDICATION
     Dosage: ORAL
     Route: 048
     Dates: start: 20101129, end: 20101129

REACTIONS (2)
  - ACCIDENTAL DRUG INTAKE BY CHILD [None]
  - GASTROENTERITIS VIRAL [None]
